FAERS Safety Report 7436746-0 (Version None)
Quarter: 2011Q2

REPORT INFORMATION
  Report Type: 
  Country: None (occurrence: None)
  Receive Date: 20110426
  Receipt Date: 20110419
  Transmission Date: 20111010
  Serious: Yes (Other)
  Sender: FDA-Public Use
  Company Number: JP-ELI_LILLY_AND_COMPANY-JP201103007404

PATIENT
  Sex: Male

DRUGS (4)
  1. ZYPREXA [Suspect]
     Dosage: UNK UNK, QD
     Dates: start: 20110316, end: 20110322
  2. ZYPREXA [Suspect]
     Dosage: 5 MG, QD
     Dates: start: 20110323, end: 20110328
  3. ZYPREXA [Suspect]
     Indication: SCHIZOPHRENIA
     Dosage: 20 MG, QD
     Dates: start: 20031101, end: 20110315
  4. LENDORMIN [Concomitant]
     Dosage: 0.25 MG, UNK
     Dates: end: 20110315

REACTIONS (2)
  - NEUTROPHIL COUNT DECREASED [None]
  - WHITE BLOOD CELL COUNT DECREASED [None]
